FAERS Safety Report 7180339-X (Version None)
Quarter: 2010Q4

REPORT INFORMATION
  Report Type: 
  Country: None (occurrence: None)
  Receive Date: 20101221
  Receipt Date: 20101215
  Transmission Date: 20110411
  Serious: Yes (Disabling)
  Sender: FDA-Public Use
  Company Number: A0894679A

PATIENT
  Age: 66 Year
  Sex: Male
  Weight: 84.1 kg

DRUGS (7)
  1. VOTRIENT [Suspect]
     Dosage: 200MG THREE TIMES PER DAY
     Route: 048
     Dates: start: 20101118, end: 20101122
  2. NEXIUM [Concomitant]
     Dosage: 40MGD PER DAY
     Route: 048
  3. DIOVAN [Concomitant]
     Dosage: 160MGD PER DAY
  4. FLOMAX [Concomitant]
     Dosage: .4MG PER DAY
  5. AMBIEN [Concomitant]
  6. TUSSINEX [Concomitant]
     Indication: COUGH
  7. ACETAMINOPHEN [Concomitant]
     Indication: PAIN

REACTIONS (6)
  - ABDOMINAL PAIN UPPER [None]
  - APHAGIA [None]
  - BACK PAIN [None]
  - CHEST DISCOMFORT [None]
  - COUGH [None]
  - INSOMNIA [None]
